FAERS Safety Report 5753416-5 (Version None)
Quarter: 2008Q2

REPORT INFORMATION
  Report Type: 
  Country: None (occurrence: None)
  Receive Date: 20080530
  Receipt Date: 20080522
  Transmission Date: 20081010
  Serious: No
  Sender: FDA-Public Use
  Company Number: US-BAYER-200823804NA

PATIENT
  Sex: Female

DRUGS (4)
  1. MIRENA [Suspect]
     Indication: CONTRACEPTION
     Route: 015
     Dates: start: 20060301, end: 20080520
  2. LUVOX [Concomitant]
     Indication: ANXIETY
  3. CLONAZEPAM [Concomitant]
  4. LABETALOL HCL [Concomitant]

REACTIONS (13)
  - ABDOMINAL PAIN [None]
  - ANXIETY [None]
  - BACK PAIN [None]
  - BREAST PAIN [None]
  - DEPRESSION [None]
  - DISSOCIATION [None]
  - HYPERTENSION [None]
  - MENSTRUATION IRREGULAR [None]
  - MOOD SWINGS [None]
  - OVARIAN CYST [None]
  - PROCEDURAL PAIN [None]
  - VAGINAL INFECTION [None]
  - WEIGHT LOSS POOR [None]
